FAERS Safety Report 8396064-3 (Version None)
Quarter: 2012Q2

REPORT INFORMATION
  Report Type: 
  Country: None (occurrence: None)
  Receive Date: 20120530
  Receipt Date: 20120522
  Transmission Date: 20120825
  Serious: Yes (Death, Life-Threatening, Hospitalization)
  Sender: FDA-Public Use
  Company Number: NO-ROCHE-1071392

PATIENT
  Sex: Female

DRUGS (2)
  1. CLONAZEPAM [Suspect]
     Indication: PRODUCT USED FOR UNKNOWN INDICATION
     Dosage: 80-90 MG ONCE, STOP DATE: /APR/2012
     Route: 048
     Dates: start: 20120427
  2. MIANSERIN [Concomitant]
     Route: 048
     Dates: end: 20120401

REACTIONS (3)
  - HYPERTHERMIA [None]
  - COMA [None]
  - HYPOXIC-ISCHAEMIC ENCEPHALOPATHY [None]
